FAERS Safety Report 7687232-4 (Version None)
Quarter: 2011Q3

REPORT INFORMATION
  Report Type: 
  Country: None (occurrence: None)
  Receive Date: 20110816
  Receipt Date: 20110803
  Transmission Date: 20111222
  Serious: Yes (Other)
  Sender: FDA-Public Use
  Company Number: GB-MYLANLABS-2011S1016058

PATIENT
  Age: 33 Year
  Sex: Male
  Weight: 68 kg

DRUGS (6)
  1. TEGRETOL [Concomitant]
     Indication: EPILEPSY
     Route: 048
     Dates: start: 20040101
  2. SIMAVASTATIN [Concomitant]
     Indication: TYPE 1 DIABETES MELLITUS
     Route: 048
     Dates: start: 20060101
  3. NOVORAPID [Concomitant]
     Indication: TYPE 1 DIABETES MELLITUS
     Dates: start: 19800101
  4. AMLODIPINE BESYLATE [Suspect]
     Indication: RESPIRATORY TRACT INFECTION
     Route: 048
     Dates: start: 20110706, end: 20110717
  5. RAMIPRIL [Concomitant]
     Indication: TYPE 1 DIABETES MELLITUS
     Route: 048
     Dates: start: 20060101
  6. LEVEMIR [Concomitant]
     Indication: TYPE 1 DIABETES MELLITUS
     Dates: start: 19800101

REACTIONS (1)
  - DIPLOPIA [None]
